FAERS Safety Report 18845818 (Version 1)
Quarter: 2021Q1

REPORT INFORMATION
  Report Type: Spontaneous
  Country: US (occurrence: US)
  Receive Date: 20210203
  Receipt Date: 20210203
  Transmission Date: 20210419
  Serious: Yes (Life-Threatening, Hospitalization, Other)
  Sender: FDA-Public Use
  Company Number: None

PATIENT
  Age: 16 Year
  Sex: Female
  Weight: 53.07 kg

DRUGS (9)
  1. DICYCLOMINE 10MG CAP LANNETT ? GENERIC FOR DICYCLOMINE HCL [Suspect]
     Active Substance: DICYCLOMINE HYDROCHLORIDE
     Indication: AUTOIMMUNE ENTEROPATHY
     Dosage: ?          QUANTITY:10 MG MILLIGRAM(S);?
     Route: 048
     Dates: start: 20210115, end: 20210121
  2. ZINC SULFATE. [Concomitant]
     Active Substance: ZINC SULFATE
  3. FERROUS SULFATE. [Concomitant]
     Active Substance: FERROUS SULFATE
  4. BUDESONIDE. [Concomitant]
     Active Substance: BUDESONIDE
  5. TYLENOL EXTRA STRENGTH [Concomitant]
     Active Substance: ACETAMINOPHEN
  6. DEXAMETHASONE. [Concomitant]
     Active Substance: DEXAMETHASONE
  7. BENADRYL [Concomitant]
     Active Substance: DIPHENHYDRAMINE HYDROCHLORIDE
  8. MELATONIN [Concomitant]
     Active Substance: MELATONIN
  9. PRIVIGEN [Concomitant]
     Active Substance: HUMAN IMMUNOGLOBULIN G

REACTIONS (2)
  - Myasthenia gravis [None]
  - Respiratory distress [None]

NARRATIVE: CASE EVENT DATE: 20210116
